FAERS Safety Report 25763685 (Version 1)
Quarter: 2025Q3

REPORT INFORMATION
  Report Type: Spontaneous
  Country: US (occurrence: US)
  Receive Date: 20250905
  Receipt Date: 20250905
  Transmission Date: 20251020
  Serious: No
  Sender: DOMPE FARMACEUTICI
  Company Number: US-FARMAPROD-202410-3779

PATIENT
  Sex: Female
  Weight: 58.06 kg

DRUGS (13)
  1. OXERVATE [Suspect]
     Active Substance: CENEGERMIN-BKBJ
     Indication: Neurotrophic keratopathy
     Route: 047
     Dates: start: 20241022
  2. OXERVATE [Suspect]
     Active Substance: CENEGERMIN-BKBJ
  3. BUPROPION [Concomitant]
     Active Substance: BUPROPION
  4. BUPROPION [Concomitant]
     Active Substance: BUPROPION
  5. ARMOUR THYROID [Concomitant]
     Active Substance: THYROID, PORCINE
  6. ARMOUR THYROID [Concomitant]
     Active Substance: THYROID, PORCINE
  7. SUBOXONE [Concomitant]
     Active Substance: BUPRENORPHINE HYDROCHLORIDE\NALOXONE HYDROCHLORIDE
  8. PROPRANOLOL HYDROCHLORIDE [Concomitant]
     Active Substance: PROPRANOLOL HYDROCHLORIDE
  9. NORTRIPTYLINE HYDROCHLORIDE [Concomitant]
     Active Substance: NORTRIPTYLINE HYDROCHLORIDE
  10. ESTRADIOL [Concomitant]
     Active Substance: ESTRADIOL
  11. ZANAFLEX [Concomitant]
     Active Substance: TIZANIDINE HYDROCHLORIDE
  12. NARCAN [Concomitant]
     Active Substance: NALOXONE HYDROCHLORIDE
  13. TOPAMAX [Concomitant]
     Active Substance: TOPIRAMATE

REACTIONS (1)
  - Eye pain [Unknown]
